FAERS Safety Report 8891352 (Version 1)
Quarter: 2012Q4

REPORT INFORMATION
  Report Type: Spontaneous
  Country: US (occurrence: None)
  Receive Date: 20121102
  Receipt Date: 20121102
  Transmission Date: 20130627
  Serious: No
  Sender: FDA-Public Use
  Company Number: None

PATIENT
  Age: 45 Year
  Sex: Female

DRUGS (1)
  1. AMPHETAMINE [Suspect]
     Dosage: XR 20mg  1 qam oral
     Route: 048

REACTIONS (3)
  - Abdominal discomfort [None]
  - Nausea [None]
  - Diarrhoea [None]
